FAERS Safety Report 4400978-6 (Version None)
Quarter: 2004Q3

REPORT INFORMATION
  Report Type: 
  Country: None (occurrence: None)
  Receive Date: 20040907
  Receipt Date: 20030903
  Transmission Date: 20050211
  Serious: No
  Sender: FDA-Public Use
  Company Number: US-BRISTOL-MYERS SQUIBB COMPANY-12373098

PATIENT
  Age: 59 Year
  Sex: Male
  Weight: 105 kg

DRUGS (5)
  1. COUMADIN [Suspect]
     Indication: CARDIAC OPERATION
     Dosage: DOSAGE: 5MG AND 2.5MG ALTERNATING DAILY
     Route: 048
     Dates: start: 20021031
  2. ZOCOR [Concomitant]
  3. ASPIRIN [Concomitant]
  4. ZOLOFT [Concomitant]
  5. TOPROL-XL [Concomitant]

REACTIONS (1)
  - HAEMORRHAGE [None]
